FAERS Safety Report 8167582-8 (Version None)
Quarter: 2012Q1

REPORT INFORMATION
  Report Type: 
  Country: None (occurrence: None)
  Receive Date: 20120227
  Receipt Date: 20120222
  Transmission Date: 20120608
  Serious: Yes (Other)
  Sender: FDA-Public Use
  Company Number: IT-ROCHE-1023431

PATIENT
  Sex: Female

DRUGS (6)
  1. LAPATINIB [Suspect]
     Dosage: TEMPORARILY INTERRUPTED
     Dates: start: 20080204, end: 20080211
  2. HERCEPTIN [Suspect]
     Indication: BREAST CANCER
     Dosage: TRASTUZUMAB INJECTION. FIRST DOSE 4MG/KG FOLLOWED BY 2MG/KG WEEKLY
     Route: 042
     Dates: start: 20080107, end: 20080125
  3. LAPATINIB [Suspect]
     Indication: BREAST CANCER
     Route: 048
     Dates: start: 20080107, end: 20080125
  4. PACLITAXEL [Concomitant]
     Dates: start: 20080107
  5. HERCEPTIN [Suspect]
     Dosage: RESTARTED
  6. LAPATINIB [Suspect]
     Dates: start: 20080215

REACTIONS (2)
  - ALANINE AMINOTRANSFERASE INCREASED [None]
  - ASPARTATE AMINOTRANSFERASE INCREASED [None]
